FAERS Safety Report 16775963 (Version 1)
Quarter: 2019Q3

REPORT INFORMATION
  Report Type: Spontaneous
  Country: US (occurrence: US)
  Receive Date: 20190905
  Receipt Date: 20190905
  Transmission Date: 20191005
  Serious: No
  Sender: FDA-Public Use
  Company Number: US-PFIZER INC-2019381765

PATIENT
  Age: 71 Year
  Sex: Female
  Weight: 103.1 kg

DRUGS (1)
  1. CELEBREX [Suspect]
     Active Substance: CELECOXIB
     Dosage: UNK

REACTIONS (3)
  - Dyspnoea [Unknown]
  - Swelling [Unknown]
  - Drug hypersensitivity [Unknown]
